FAERS Safety Report 4380444-7 (Version None)
Quarter: 2004Q2

REPORT INFORMATION
  Report Type: 
  Country: None (occurrence: None)
  Receive Date: 20040614
  Receipt Date: 20040602
  Transmission Date: 20050107
  Serious: Yes (Disabling, Other)
  Sender: FDA-Public Use
  Company Number: 2004210540DE

PATIENT
  Age: 28 Year
  Sex: Female

DRUGS (1)
  1. DEPO-CLINOVIR (MEDROXYPROGESTERONE ACETATE) SUSPENSION, STERILE, 150 M [Suspect]
     Dosage: FIRST INJECTION, INTRAMUSCULAR
     Route: 030
     Dates: start: 20021004, end: 20021004

REACTIONS (2)
  - HYPERHIDROSIS [None]
  - METRORRHAGIA [None]
